FAERS Safety Report 8559703-X (Version None)
Quarter: 2012Q2

REPORT INFORMATION
  Report Type: 
  Country: None (occurrence: None)
  Receive Date: 20120418
  Receipt Date: 20100330
  Transmission Date: 20120825
  Serious: Yes (Other)
  Sender: FDA-Public Use
  Company Number: PHHY2010US20414

PATIENT
  Age: 74 Year
  Sex: Female

DRUGS (12)
  1. ALBUTEROL [Concomitant]
  2. CARAFATE [Concomitant]
  3. NOVOLOG [Concomitant]
  4. PREVACID [Concomitant]
  5. DIOVAN [Suspect]
     Dosage: 160 MG, QD, ORAL
     Route: 048
  6. TEKTURNA [Suspect]
     Dosage: 150 MG, QD, ORAL
     Route: 048
  7. TOPAMAX [Concomitant]
  8. LIPITOR [Concomitant]
  9. SPIRIVA [Concomitant]
  10. DETROL [Concomitant]
  11. CELEBREX [Concomitant]
  12. FOSAMAX [Concomitant]

REACTIONS (2)
  - SWOLLEN TONGUE [None]
  - ANGIOEDEMA [None]
